FAERS Safety Report 11418957 (Version 1)
Quarter: 2015Q3

REPORT INFORMATION
  Report Type: Spontaneous
  Country: US (occurrence: None)
  Receive Date: 20150824
  Receipt Date: 20150824
  Transmission Date: 20151125
  Serious: Yes (Hospitalization)
  Sender: FDA-Public Use
  Company Number: COM-003466

PATIENT
  Age: 53 Year
  Sex: Female
  Weight: 68.04 kg

DRUGS (2)
  1. UNSPECIFIED CHOLESTEROL AND THYROID MEDICATION [Concomitant]
  2. DOCUSATE SODIUM 100 MG SOFTGELS/BANNER [Suspect]
     Active Substance: DOCUSATE SODIUM
     Indication: CONSTIPATION
     Dosage: 2 SOFTGELS, ONCE ORAL
     Route: 048
     Dates: start: 20150809

REACTIONS (7)
  - Headache [None]
  - Abdominal discomfort [None]
  - Presyncope [None]
  - Abdominal pain upper [None]
  - Nausea [None]
  - Product substitution issue [None]
  - Dizziness [None]

NARRATIVE: CASE EVENT DATE: 20150809
